FAERS Safety Report 6313701-5 (Version None)
Quarter: 2009Q3

REPORT INFORMATION
  Report Type: 
  Country: None (occurrence: None)
  Receive Date: 20090817
  Receipt Date: 20090817
  Transmission Date: 20100115
  Serious: Yes (Hospitalization)
  Sender: FDA-Public Use
  Company Number: None

PATIENT
  Age: 60 Year
  Sex: Male
  Weight: 118.6 kg

DRUGS (2)
  1. PRAMIPEXOLE DIHYDROCHLORIDE [Suspect]
     Indication: PARKINSON'S DISEASE
     Dosage: 0.25 MG QID PO
     Route: 048
     Dates: start: 20080512, end: 20090608
  2. ATENOLOL [Suspect]
     Indication: HYPERTENSION
     Dosage: 50 MG EVERY DAY PO
     Route: 048
     Dates: start: 20050701

REACTIONS (5)
  - HYPERHIDROSIS [None]
  - HYPOVENTILATION [None]
  - PALLOR [None]
  - SYNCOPE [None]
  - UNRESPONSIVE TO STIMULI [None]
